FAERS Safety Report 14896596 (Version 1)
Quarter: 2018Q2

REPORT INFORMATION
  Report Type: Spontaneous
  Country: US (occurrence: US)
  Receive Date: 20180515
  Receipt Date: 20180515
  Transmission Date: 20180711
  Serious: Yes (Other)
  Sender: FDA-Public Use
  Company Number: US-PFIZER INC-2018198159

PATIENT

DRUGS (8)
  1. NEXIUM 24HR [Suspect]
     Active Substance: ESOMEPRAZOLE MAGNESIUM
  2. PRILOSEC OTC [Suspect]
     Active Substance: OMEPRAZOLE MAGNESIUM
  3. PRILOSEC [Suspect]
     Active Substance: OMEPRAZOLE MAGNESIUM
  4. PROTONIX [Suspect]
     Active Substance: PANTOPRAZOLE SODIUM
  5. NEXIUM [Suspect]
     Active Substance: ESOMEPRAZOLE MAGNESIUM
  6. PREVACID [Suspect]
     Active Substance: LANSOPRAZOLE
  7. PREVACID 24 HR [Suspect]
     Active Substance: LANSOPRAZOLE
  8. DEXILANT [Suspect]
     Active Substance: DEXLANSOPRAZOLE

REACTIONS (2)
  - Chronic kidney disease [Unknown]
  - Renal failure [Unknown]
